FAERS Safety Report 11865509 (Version 1)
Quarter: 2015Q4

REPORT INFORMATION
  Report Type: Spontaneous
  Country: US (occurrence: US)
  Receive Date: 20151223
  Receipt Date: 20151223
  Transmission Date: 20160305
  Serious: No
  Sender: FDA-Public Use
  Company Number: US-BRISTOL-MYERS SQUIBB COMPANY-BMS-2015-088082

PATIENT
  Age: 58 Year
  Sex: Female

DRUGS (2)
  1. ABILIFY [Suspect]
     Active Substance: ARIPIPRAZOLE
     Indication: MAJOR DEPRESSION
     Dosage: 2 MG, UNK
     Route: 065
  2. PRISTIQ EXTENDED RELEASE [Concomitant]
     Active Substance: DESVENLAFAXINE SUCCINATE
     Indication: PRODUCT USED FOR UNKNOWN INDICATION
     Dosage: UNK
     Route: 065

REACTIONS (19)
  - Restlessness [Unknown]
  - Emotional disorder [Unknown]
  - Memory impairment [Unknown]
  - Depressed mood [Unknown]
  - Hypersomnia [Unknown]
  - Hostility [Unknown]
  - Initial insomnia [Unknown]
  - Anger [Unknown]
  - Social avoidant behaviour [Unknown]
  - Decreased interest [Unknown]
  - Disturbance in attention [Unknown]
  - Libido decreased [Unknown]
  - Feeling abnormal [Unknown]
  - Anxiety [Unknown]
  - Irritability [Unknown]
  - Aggression [Unknown]
  - Depression [Unknown]
  - Fatigue [Unknown]
  - Tension [Unknown]
